FAERS Safety Report 10475219 (Version 1)
Quarter: 2014Q3

REPORT INFORMATION
  Report Type: Spontaneous
  Country: US (occurrence: None)
  Receive Date: 20140924
  Receipt Date: 20140924
  Transmission Date: 20150326
  Serious: Yes (Hospitalization)
  Sender: FDA-Public Use
  Company Number: None

PATIENT
  Age: 71 Year
  Sex: Male
  Weight: 64 kg

DRUGS (15)
  1. GABAPENTIN. [Concomitant]
     Active Substance: GABAPENTIN
  2. LASIX [Concomitant]
     Active Substance: FUROSEMIDE
  3. COLCHICINE. [Concomitant]
     Active Substance: COLCHICINE
  4. OMEPRAZOLE. [Concomitant]
     Active Substance: OMEPRAZOLE
  5. OXYCODONE [Concomitant]
     Active Substance: OXYCODONE
  6. PHOSLO [Concomitant]
     Active Substance: CALCIUM ACETATE
  7. LANTUS [Suspect]
     Active Substance: INSULIN GLARGINE
     Indication: DIABETES MELLITUS
     Dosage: 28 UNITS, QHS, SQ
     Route: 058
  8. COREG [Concomitant]
     Active Substance: CARVEDILOL
  9. RESTORI [Concomitant]
  10. NOVOLIN R [Suspect]
     Active Substance: INSULIN HUMAN
     Indication: DIABETES MELLITUS
     Dosage: CHRONIC?SSI AND 5 UNITS WITH MEALS SQ
     Route: 058
  11. TRAMADOL [Concomitant]
     Active Substance: TRAMADOL
  12. CELLCEPT [Concomitant]
     Active Substance: MYCOPHENOLATE MOFETIL\MYCOPHENOLATE MOFETIL HYDROCHLORIDE
  13. NTG [Suspect]
     Active Substance: NITROGLYCERIN
  14. MIRALAX [Concomitant]
     Active Substance: POLYETHYLENE GLYCOL 3350
  15. LIDODERM [Concomitant]
     Active Substance: LIDOCAINE

REACTIONS (4)
  - Blood glucose fluctuation [None]
  - Hypoglycaemia [None]
  - Inadequate diet [None]
  - Fall [None]

NARRATIVE: CASE EVENT DATE: 20140427
